FAERS Safety Report 9522641 (Version 2)
Quarter: 2014Q2

REPORT INFORMATION
  Report Type: Report from Study
  Country: GB (occurrence: GB)
  Receive Date: 20130913
  Receipt Date: 20140410
  Transmission Date: 20141212
  Serious: Yes (Death, Hospitalization, Disabling, Other)
  Sender: FDA-Public Use
  Company Number: GB-TEVA-431903USA

PATIENT
  Age: 69 Year
  Sex: Male
  Weight: 61.4 kg

DRUGS (9)
  1. BENDAMUSTIN [Suspect]
     Indication: CHRONIC LYMPHOCYTIC LEUKAEMIA
     Route: 042
     Dates: start: 20130701
  2. RITUXIMAB [Suspect]
     Indication: CHRONIC LYMPHOCYTIC LEUKAEMIA
     Route: 042
     Dates: start: 20130701
  3. GS-1101 (BLINDED STUDY DRUG) [Suspect]
     Indication: CHRONIC LYMPHOCYTIC LEUKAEMIA
     Dosage: 300 MILLIGRAM DAILY;
     Route: 048
     Dates: start: 20130520, end: 20130718
  4. FILGRASTIM [Concomitant]
     Dates: start: 20130528
  5. FORTISIP [Concomitant]
     Dates: start: 20130701
  6. ACYCLOVIR [Concomitant]
     Dates: start: 201006
  7. PENICILLIN V [Concomitant]
  8. CODEINE PHOSPHATE [Concomitant]
  9. IMMUNOGLOBULINS [Concomitant]
     Dates: start: 201108

REACTIONS (3)
  - Ascites [Not Recovered/Not Resolved]
  - Death [Fatal]
  - Neutropenic sepsis [Recovered/Resolved]
